FAERS Safety Report 5573737-9 (Version None)
Quarter: 2007Q4

REPORT INFORMATION
  Report Type: 
  Country: None (occurrence: None)
  Receive Date: 20071226
  Receipt Date: 20071218
  Transmission Date: 20080405
  Serious: Yes (Hospitalization)
  Sender: FDA-Public Use
  Company Number: FR-BRISTOL-MYERS SQUIBB COMPANY-14022545

PATIENT
  Age: 54 Year
  Sex: Male

DRUGS (6)
  1. ENDOXAN [Suspect]
     Indication: NON-HODGKIN'S LYMPHOMA
     Route: 042
     Dates: start: 20070921, end: 20070921
  2. UROMITEXAN [Suspect]
     Indication: NON-HODGKIN'S LYMPHOMA
     Route: 042
     Dates: start: 20070921, end: 20070921
  3. DOXORUBICIN HCL [Suspect]
     Indication: NON-HODGKIN'S LYMPHOMA
     Route: 042
     Dates: start: 20070917, end: 20070917
  4. ETOPOSIDE [Suspect]
     Indication: NON-HODGKIN'S LYMPHOMA
     Route: 042
     Dates: start: 20070917, end: 20070919
  5. VINCRISTINE [Suspect]
     Indication: NON-HODGKIN'S LYMPHOMA
     Route: 042
     Dates: start: 20070917, end: 20070920
  6. CORTANCYL [Suspect]
     Indication: PREMEDICATION
     Route: 048
     Dates: start: 20070917, end: 20070921

REACTIONS (2)
  - PYREXIA [None]
  - RASH MACULO-PAPULAR [None]
